FAERS Safety Report 23777509 (Version 1)
Quarter: 2024Q2

REPORT INFORMATION
  Report Type: Spontaneous
  Country: JP (occurrence: JP)
  Receive Date: 20240424
  Receipt Date: 20240424
  Transmission Date: 20240716
  Serious: Yes (Death)
  Sender: FDA-Public Use
  Company Number: JP-ABBVIE-4138062

PATIENT
  Age: 53 Year
  Sex: Male

DRUGS (10)
  1. VENCLEXTA [Suspect]
     Active Substance: VENETOCLAX
     Indication: Chronic lymphocytic leukaemia
     Dosage: 100 MILLIGRAM
     Route: 048
  2. VENCLEXTA [Suspect]
     Active Substance: VENETOCLAX
     Indication: Chronic lymphocytic leukaemia
     Dosage: 50 MILLIGRAM
     Route: 048
  3. VENCLEXTA [Suspect]
     Active Substance: VENETOCLAX
     Indication: Chronic lymphocytic leukaemia
     Dosage: 200 MILLIGRAM
     Route: 048
  4. VENCLEXTA [Suspect]
     Active Substance: VENETOCLAX
     Indication: Chronic lymphocytic leukaemia
     Dosage: 20 MILLIGRAM
     Route: 048
  5. VENCLEXTA [Suspect]
     Active Substance: VENETOCLAX
     Indication: Chronic lymphocytic leukaemia
     Dosage: FORM STRENGTH: 100 MG
     Route: 048
  6. RITUXAN [Suspect]
     Active Substance: RITUXIMAB
     Indication: Chronic lymphocytic leukaemia
     Dosage: 500 MG/M2?GENETICAL RECOMBINATION
     Route: 041
  7. RITUXAN [Suspect]
     Active Substance: RITUXIMAB
     Indication: Chronic lymphocytic leukaemia
     Dosage: 375 MG/M2
     Route: 041
  8. CYCLOSPORINE [Concomitant]
     Active Substance: CYCLOSPORINE
     Indication: Glomerulonephritis membranous
     Dosage: 100 MILLIGRAM
  9. FEBUXOSTAT [Concomitant]
     Active Substance: FEBUXOSTAT
     Indication: Prophylaxis
     Dosage: 60 MG
  10. PREDNISOLONE [Concomitant]
     Active Substance: PREDNISOLONE
     Indication: Glomerulonephritis membranous
     Dosage: 0.5 MG/KG

REACTIONS (4)
  - COVID-19 pneumonia [Fatal]
  - Infusion related reaction [Recovered/Resolved]
  - Neutrophil count decreased [Unknown]
  - Anaemia [Unknown]
